FAERS Safety Report 16697698 (Version 1)
Quarter: 2019Q4

REPORT INFORMATION
  Report Type: Spontaneous
  Country: US (occurrence: US)
  Receive Date: 20190812
  Receipt Date: 20190812
  Transmission Date: 20200122
  Serious: No
  Sender: FDA-Public Use
  Company Number: None

PATIENT
  Age: 64 Year
  Sex: Female
  Weight: 108 kg

DRUGS (3)
  1. DICLOFENAC SODIUM TOPICAL GEL 1% 100 G TUBE [Suspect]
     Active Substance: DICLOFENAC SODIUM
     Indication: BURSITIS
     Dosage: ?          QUANTITY:4 GRAMS;?
     Route: 061
     Dates: start: 20190809, end: 20190811
  2. PEPCID [Suspect]
     Active Substance: FAMOTIDINE
  3. DICLOFENAC SODIUM TOPICAL GEL 1% 100 G TUBE [Suspect]
     Active Substance: DICLOFENAC SODIUM
     Indication: TENDONITIS
     Dosage: ?          QUANTITY:4 GRAMS;?
     Route: 061
     Dates: start: 20190809, end: 20190811

REACTIONS (9)
  - Asthenia [None]
  - Dyspepsia [None]
  - Dry mouth [None]
  - Insomnia [None]
  - Headache [None]
  - Oropharyngeal pain [None]
  - Dysuria [None]
  - Cough [None]
  - Pallor [None]

NARRATIVE: CASE EVENT DATE: 20190811
